FAERS Safety Report 4294624-2 (Version None)
Quarter: 2004Q1

REPORT INFORMATION
  Report Type: 
  Country: None (occurrence: None)
  Receive Date: 20040211
  Receipt Date: 20040127
  Transmission Date: 20041129
  Serious: Yes (Life-Threatening)
  Sender: FDA-Public Use
  Company Number: JP_040102565

PATIENT
  Age: 65 Year
  Sex: Male

DRUGS (9)
  1. ZYPREXA [Suspect]
     Indication: SCHIZOPHRENIA, PARANOID TYPE
     Dosage: 5 MG DAY
     Dates: start: 20030403, end: 20030914
  2. IMPROMEN (BROMPERIDOL) [Concomitant]
  3. AKINETON [Concomitant]
  4. DORAL [Concomitant]
  5. EURODIN (ESTAZOLAM) [Concomitant]
  6. DEPAS (ETIZOLAM) [Concomitant]
  7. FORSENID (SENNOSIDE A+B) [Concomitant]
  8. PANTOSIN (PANTETHINE) [Concomitant]
  9. MAGNESIUM OXIDE HEAVY [Concomitant]

REACTIONS (2)
  - DEPRESSED LEVEL OF CONSCIOUSNESS [None]
  - FALL [None]
